FAERS Safety Report 6641358-2 (Version None)
Quarter: 2010Q1

REPORT INFORMATION
  Report Type: 
  Country: None (occurrence: None)
  Receive Date: 20100317
  Receipt Date: 20100317
  Transmission Date: 20100710
  Serious: Yes (Other)
  Sender: FDA-Public Use
  Company Number: None

PATIENT
  Age: 58 Year
  Sex: Female
  Weight: 58.9676 kg

DRUGS (1)
  1. METOPROLOL SUCCINATE [Suspect]
     Indication: ATRIAL TACHYCARDIA
     Dosage: 25 MG. 2 TIMES PER DAY PO
     Route: 048

REACTIONS (3)
  - ATRIAL TACHYCARDIA [None]
  - HEART RATE INCREASED [None]
  - PRODUCT SUBSTITUTION ISSUE [None]
